FAERS Safety Report 5002279-4 (Version None)
Quarter: 2006Q2

REPORT INFORMATION
  Report Type: 
  Country: None (occurrence: None)
  Receive Date: 20060508
  Receipt Date: 20060427
  Transmission Date: 20061013
  Serious: Yes (Other)
  Sender: FDA-Public Use
  Company Number: 200610090BBE

PATIENT
  Age: 13 Year
  Sex: Female

DRUGS (29)
  1. GAMUNEX [Suspect]
     Dosage: SEE IMAGE
     Dates: start: 20050609
  2. GAMUNEX [Suspect]
     Dosage: SEE IMAGE
     Dates: start: 20050617
  3. GAMUNEX [Suspect]
     Dosage: SEE IMAGE
     Dates: start: 20050623
  4. GAMUNEX [Suspect]
     Dosage: SEE IMAGE
     Dates: start: 20050630
  5. GAMUNEX [Suspect]
     Dosage: SEE IMAGE
     Dates: start: 20050707
  6. GAMUNEX [Suspect]
     Dosage: SEE IMAGE
     Dates: start: 20050810
  7. GAMUNEX [Suspect]
     Dosage: SEE IMAGE
     Dates: start: 20050824
  8. GAMUNEX [Suspect]
     Dosage: SEE IMAGE
     Dates: start: 20050921
  9. GAMUNEX [Suspect]
     Dosage: SEE IMAGE
     Dates: start: 20051025
  10. GAMUNEX [Suspect]
     Dosage: SEE IMAGE
     Dates: start: 20051117
  11. GAMUNEX [Suspect]
     Dosage: SEE IMAGE
     Dates: start: 20060209
  12. GAMUNEX [Suspect]
     Dosage: SEE IMAGE
     Dates: start: 20060223
  13. GAMUNEX [Suspect]
     Dosage: SEE IMAGE
     Dates: start: 20060306
  14. GAMUNEX [Suspect]
     Dosage: SEE IMAGE
     Dates: start: 20060316
  15. GAMUNEX [Suspect]
  16. GAMUNEX [Suspect]
  17. GAMUNEX [Suspect]
  18. GAMUNEX [Suspect]
  19. GAMUNEX [Suspect]
  20. GAMUNEX [Suspect]
  21. GAMUNEX [Suspect]
  22. GAMUNEX [Suspect]
  23. GAMUNEX [Suspect]
  24. GAMUNEX [Suspect]
  25. GAMIMUNE N 10% [Suspect]
     Dosage: 10 G, TOTAL DAILY, INTRAVENOUS
     Route: 042
     Dates: start: 20050722
  26. WINRHO [Suspect]
     Dosage: SEE IMAGE
     Dates: start: 20050412
  27. WINRHO [Suspect]
     Dosage: SEE IMAGE
     Dates: start: 20050422
  28. ^POOL OF IGIV^ (IMMUNOGLOBULIN HUMAN NORMAL) [Suspect]
     Dosage: SEE IMGE
     Dates: start: 20050512
  29. ^POOL OF IGIV^ (IMMUNOGLOBULIN HUMAN NORMAL) [Suspect]
     Dosage: SEE IMGE
     Dates: start: 20050527

REACTIONS (1)
  - HEPATITIS B POSITIVE [None]
